FAERS Safety Report 17527622 (Version 1)
Quarter: 2020Q1

REPORT INFORMATION
  Report Type: Spontaneous
  Country: US (occurrence: US)
  Receive Date: 20200311
  Receipt Date: 20200311
  Transmission Date: 20200409
  Serious: No
  Sender: FDA-Public Use
  Company Number: US-PFIZER INC-2020104885

PATIENT
  Age: 57 Year
  Sex: Female

DRUGS (1)
  1. XELJANZ [Suspect]
     Active Substance: TOFACITINIB CITRATE
     Dosage: UNK
     Dates: start: 2019, end: 202003

REACTIONS (13)
  - Oropharyngeal pain [Unknown]
  - Respiratory tract congestion [Unknown]
  - Chills [Unknown]
  - Abdominal pain upper [Unknown]
  - Gastrointestinal pain [Unknown]
  - Glossodynia [Unknown]
  - Urinary tract infection [Unknown]
  - Cold sweat [Unknown]
  - Pyrexia [Unknown]
  - Vomiting [Unknown]
  - Nausea [Unknown]
  - Ear pain [Unknown]
  - Headache [Unknown]

NARRATIVE: CASE EVENT DATE: 2020
